FAERS Safety Report 23440601 (Version 3)
Quarter: 2024Q1

REPORT INFORMATION
  Report Type: Report from Study
  Country: US (occurrence: US)
  Receive Date: 20240125
  Receipt Date: 20240311
  Transmission Date: 20240409
  Serious: Yes (Hospitalization, Other)
  Sender: FDA-Public Use
  Company Number: US-ABBVIE-5600001

PATIENT
  Age: 66 Year
  Sex: Male

DRUGS (3)
  1. IMBRUVICA [Suspect]
     Active Substance: IBRUTINIB
     Indication: Chronic lymphocytic leukaemia
     Dosage: FIRST ADMIN DATE WAS AUG 2023
     Route: 048
     Dates: end: 20240115
  2. IMBRUVICA [Suspect]
     Active Substance: IBRUTINIB
     Indication: Chronic lymphocytic leukaemia
     Dosage: LAST ADMIN DATE WAS AUG 2023
     Route: 048
     Dates: start: 20230805
  3. IMBRUVICA [Suspect]
     Active Substance: IBRUTINIB
     Indication: Chronic lymphocytic leukaemia
     Route: 048
     Dates: start: 20240210

REACTIONS (4)
  - Heart rate increased [Recovered/Resolved]
  - Heart rate increased [Unknown]
  - Pneumonia [Unknown]
  - Localised infection [Unknown]

NARRATIVE: CASE EVENT DATE: 20240210
